FAERS Safety Report 10306572 (Version 2)
Quarter: 2014Q3

REPORT INFORMATION
  Report Type: Spontaneous
  Country: JP (occurrence: None)
  Receive Date: 20140711
  Receipt Date: 20140801
  Transmission Date: 20150326
  Serious: Yes (Hospitalization)
  Sender: FDA-Public Use
  Company Number: 2014COR00029

PATIENT
  Age: 77 Year
  Sex: Male

DRUGS (1)
  1. GLIMEPIRIDE (GLIMEPIRIDE) UNKNOWN [Suspect]
     Active Substance: GLIMEPIRIDE

REACTIONS (2)
  - Accidental exposure to product [None]
  - Hypoglycaemia [None]
